FAERS Safety Report 16839006 (Version 1)
Quarter: 2019Q3

REPORT INFORMATION
  Report Type: Report from Study
  Country: US (occurrence: US)
  Receive Date: 20190923
  Receipt Date: 20190923
  Transmission Date: 20191005
  Serious: Yes (Congenital Anomaly)
  Sender: FDA-Public Use
  Company Number: US-GLAXOSMITHKLINE-US2019170681

PATIENT
  Sex: Male

DRUGS (8)
  1. REYATAZ [Suspect]
     Active Substance: ATAZANAVIR SULFATE
     Indication: PROPHYLAXIS AGAINST HIV INFECTION
     Dosage: 400 MG
     Route: 064
     Dates: start: 20040621, end: 20041122
  2. EPZICOM [Suspect]
     Active Substance: ABACAVIR SULFATE\LAMIVUDINE
     Indication: PROPHYLAXIS AGAINST HIV INFECTION
     Dosage: 900 MG
     Route: 064
     Dates: start: 20040922, end: 20041122
  3. VIRACEPT [Suspect]
     Active Substance: NELFINAVIR MESYLATE
     Indication: PROPHYLAXIS AGAINST HIV INFECTION
     Dosage: 2500 MG
     Route: 064
     Dates: start: 20040804, end: 20041122
  4. TENOFOVIR DISOPROXIL FUMARATE. [Suspect]
     Active Substance: TENOFOVIR DISOPROXIL FUMARATE
     Indication: PROPHYLAXIS AGAINST HIV INFECTION
     Dosage: 300 MG, UNK
     Route: 064
     Dates: start: 20040804, end: 20041122
  5. COMBIVIR [Suspect]
     Active Substance: LAMIVUDINE\ZIDOVUDINE
     Indication: PROPHYLAXIS AGAINST HIV INFECTION
     Dosage: 900 MG
     Route: 064
     Dates: start: 20040804, end: 20040922
  6. TRIZIVIR [Suspect]
     Active Substance: ABACAVIR SULFATE\LAMIVUDINE\ZIDOVUDINE
     Indication: PROPHYLAXIS AGAINST HIV INFECTION
     Dosage: 1500 MG
     Route: 064
     Dates: start: 20040621, end: 20041122
  7. RETROVIR [Suspect]
     Active Substance: ZIDOVUDINE
     Indication: PROPHYLAXIS AGAINST HIV INFECTION
     Dosage: 2 MG/KG
     Route: 064
     Dates: start: 20041222, end: 20041222
  8. RETROVIR [Suspect]
     Active Substance: ZIDOVUDINE
     Dosage: 1 MG/KG
     Route: 064
     Dates: start: 20041222, end: 20041222

REACTIONS (2)
  - Foetal exposure during pregnancy [Recovered/Resolved]
  - Congenital naevus [Unknown]
